FAERS Safety Report 5201862-0 (Version None)
Quarter: 2006Q4

REPORT INFORMATION
  Report Type: 
  Country: None (occurrence: None)
  Receive Date: 20061003
  Receipt Date: 20060609
  Transmission Date: 20070319
  Serious: Yes (Hospitalization, Other)
  Sender: FDA-Public Use
  Company Number: 2006-0009609

PATIENT
  Sex: Male

DRUGS (4)
  1. TRUVADA [Suspect]
     Indication: HIV INFECTION
     Dates: start: 20060501, end: 20060518
  2. SUSTIVA [Suspect]
     Indication: HIV INFECTION
     Dates: start: 20060501, end: 20060518
  3. BACTRIM [Concomitant]
  4. TYELNOL (PARACETAMOL) [Concomitant]

REACTIONS (3)
  - NEPHRITIS INTERSTITIAL [None]
  - RENAL FAILURE [None]
  - RENAL TUBULAR DISORDER [None]
